FAERS Safety Report 7298296-4 (Version None)
Quarter: 2011Q1

REPORT INFORMATION
  Report Type: 
  Country: None (occurrence: None)
  Receive Date: 20110217
  Receipt Date: 20100416
  Transmission Date: 20110831
  Serious: No
  Sender: FDA-Public Use
  Company Number: US-PFIZER INC-2010048462

PATIENT
  Sex: Male
  Weight: 83.9 kg

DRUGS (2)
  1. TIMOLOL [Concomitant]
     Indication: GLAUCOMA
     Dosage: UNK
  2. XALATAN [Suspect]
     Indication: GLAUCOMA
     Dosage: UNK, DAILY
     Route: 047

REACTIONS (1)
  - VISUAL BRIGHTNESS [None]
